FAERS Safety Report 17599606 (Version 2)
Quarter: 2020Q2

REPORT INFORMATION
  Report Type: Other
  Country: RU (occurrence: RU)
  Receive Date: 20200330
  Receipt Date: 20200410
  Transmission Date: 20200713
  Serious: Yes (Hospitalization)
  Sender: FDA-Public Use
  Company Number: RU-EMD SERONO-9153912

PATIENT
  Age: 61 Year
  Sex: Male

DRUGS (3)
  1. ENALAPRIL [Concomitant]
     Active Substance: ENALAPRIL
     Indication: HYPERTENSION
  2. METFORMIN [Suspect]
     Active Substance: METFORMIN HYDROCHLORIDE
     Indication: TYPE 2 DIABETES MELLITUS
  3. BISOPROLOL [Suspect]
     Active Substance: BISOPROLOL
     Indication: HYPERTENSION

REACTIONS (4)
  - Blood pressure increased [Unknown]
  - Hemiparesis [Recovering/Resolving]
  - Ischaemic stroke [Not Recovered/Not Resolved]
  - Speech disorder [Unknown]

NARRATIVE: CASE EVENT DATE: 20170927
